FAERS Safety Report 7407485-7 (Version None)
Quarter: 2011Q2

REPORT INFORMATION
  Report Type: 
  Country: None (occurrence: None)
  Receive Date: 20110412
  Receipt Date: 20110407
  Transmission Date: 20111010
  Serious: Yes (Hospitalization, Other)
  Sender: FDA-Public Use
  Company Number: AR-AMGEN-ARGSP2011007641

PATIENT
  Age: 13 Year
  Sex: Male
  Weight: 37 kg

DRUGS (5)
  1. VITAMINS                           /00067501/ [Concomitant]
     Dosage: UNK
  2. FOLIC ACID [Concomitant]
     Dosage: UNK
  3. CORTICOSTEROIDS [Concomitant]
     Dosage: UNK
  4. ENBREL [Suspect]
     Indication: RHEUMATOID ARTHRITIS
     Dosage: 25 MG, 2X/WEEK
     Route: 058
     Dates: start: 20080701, end: 20101213
  5. METHOTREXATE [Concomitant]
     Dosage: UNK

REACTIONS (3)
  - RHEUMATOID ARTHRITIS [None]
  - PYREXIA [None]
  - INFLAMMATION [None]
